FAERS Safety Report 4597668-6 (Version None)
Quarter: 2005Q1

REPORT INFORMATION
  Report Type: 
  Country: None (occurrence: None)
  Receive Date: 20050303
  Receipt Date: 20050224
  Transmission Date: 20050727
  Serious: Yes (Hospitalization)
  Sender: FDA-Public Use
  Company Number: PH-GLAXOSMITHKLINE-B0373437A

PATIENT
  Age: 73 Year
  Sex: Male

DRUGS (1)
  1. AVANDAMET [Suspect]
     Indication: ILL-DEFINED DISORDER
     Dosage: 2MG TWICE PER DAY
     Route: 065
     Dates: start: 20041001, end: 20050201

REACTIONS (2)
  - ABDOMINAL DISTENSION [None]
  - ANAEMIA [None]
